FAERS Safety Report 5826533-9 (Version None)
Quarter: 2008Q3

REPORT INFORMATION
  Report Type: 
  Country: None (occurrence: None)
  Receive Date: 20080725
  Receipt Date: 20080717
  Transmission Date: 20090109
  Serious: Yes (Other)
  Sender: FDA-Public Use
  Company Number: 163-20785-08070795

PATIENT
  Age: 49 Year
  Sex: Female

DRUGS (4)
  1. THALOMID [Suspect]
     Indication: MULTIPLE MYELOMA
     Dosage: 100 MG, 2 IN 1 D, ORAL; 100 MG, 1 IN 1 D, ORAL; DAILY, ORAL; 200 MG, 1 IN 1 D, ORAL
     Route: 048
     Dates: start: 20071120, end: 20071201
  2. THALOMID [Suspect]
     Indication: MULTIPLE MYELOMA
     Dosage: 100 MG, 2 IN 1 D, ORAL; 100 MG, 1 IN 1 D, ORAL; DAILY, ORAL; 200 MG, 1 IN 1 D, ORAL
     Route: 048
     Dates: start: 20071227, end: 20080201
  3. THALOMID [Suspect]
     Indication: MULTIPLE MYELOMA
     Dosage: 100 MG, 2 IN 1 D, ORAL; 100 MG, 1 IN 1 D, ORAL; DAILY, ORAL; 200 MG, 1 IN 1 D, ORAL
     Route: 048
     Dates: start: 20080212, end: 20080301
  4. THALOMID [Suspect]
     Indication: MULTIPLE MYELOMA
     Dosage: 100 MG, 2 IN 1 D, ORAL; 100 MG, 1 IN 1 D, ORAL; DAILY, ORAL; 200 MG, 1 IN 1 D, ORAL
     Route: 048
     Dates: start: 20080306, end: 20080701

REACTIONS (2)
  - BLOOD HUMAN CHORIONIC GONADOTROPIN ABNORMAL [None]
  - BLOOD HUMAN CHORIONIC GONADOTROPIN INCREASED [None]
